FAERS Safety Report 6086069-X (Version None)
Quarter: 2009Q1

REPORT INFORMATION
  Report Type: 
  Country: None (occurrence: None)
  Receive Date: 20090217
  Receipt Date: 20081205
  Transmission Date: 20090719
  Serious: Yes (Other)
  Sender: FDA-Public Use
  Company Number: MC200800560

PATIENT
  Sex: Male

DRUGS (1)
  1. ANGIOMAX [Suspect]
     Indication: CORONARY ARTERY BYPASS
     Dosage: INTRAVENOUS
     Route: 042
     Dates: start: 20081101, end: 20081101

REACTIONS (1)
  - HAEMORRHAGE [None]
